FAERS Safety Report 9133481 (Version 4)
Quarter: 2014Q3

REPORT INFORMATION
  Report Type: Spontaneous
  Country: US (occurrence: US)
  Receive Date: 20130301
  Receipt Date: 20140703
  Transmission Date: 20150326
  Serious: Yes (Other)
  Sender: FDA-Public Use
  Company Number: US-ELI_LILLY_AND_COMPANY-US201302008201

PATIENT
  Age: 14 Year
  Sex: Female

DRUGS (2)
  1. GEMCITABINE HYDROCHLORIDE. [Suspect]
     Active Substance: GEMCITABINE HYDROCHLORIDE
     Indication: SYNOVIAL SARCOMA
     Dosage: 900 MG/M2, OTHER
  2. DOCETAXEL [Concomitant]
     Active Substance: DOCETAXEL
     Dosage: 100 MG/M2, OTHER

REACTIONS (3)
  - Compartment syndrome [Recovered/Resolved]
  - Off label use [Recovered/Resolved]
  - Recall phenomenon [Recovered/Resolved]
